FAERS Safety Report 6235728-4 (Version None)
Quarter: 2009Q2

REPORT INFORMATION
  Report Type: 
  Country: None (occurrence: None)
  Receive Date: 20090619
  Receipt Date: 20070425
  Transmission Date: 20091009
  Serious: Yes (Hospitalization, Other)
  Sender: FDA-Public Use
  Company Number: US-ASTRAZENECA-2006UW26390

PATIENT
  Age: 19598 Day
  Sex: Female
  Weight: 75.6 kg

DRUGS (13)
  1. SEROQUEL [Suspect]
     Indication: ANXIETY
     Dosage: 25 MG TO 200 MG
     Route: 048
     Dates: start: 20010820
  2. SEROQUEL [Suspect]
     Route: 048
     Dates: end: 20050501
  3. METHADONE [Concomitant]
     Indication: BACK PAIN
  4. COUMADIN [Concomitant]
     Dosage: 2.5 MG TO 5 MG
  5. AVANDIA [Concomitant]
     Dosage: 2 MG TO 8 MG
  6. LIPITOR [Concomitant]
  7. TRICOR [Concomitant]
     Indication: HYPERTRIGLYCERIDAEMIA
  8. ACCUPRIL [Concomitant]
     Dosage: 40 MG TO 80 MG
     Route: 048
  9. XANAX [Concomitant]
     Dosage: 0.25 MG TO 0.5 MG
     Route: 048
  10. EFFEXOR [Concomitant]
     Dosage: 150 MG TO 225 MG
     Route: 048
  11. INDAPAMIDE [Concomitant]
     Route: 048
  12. TRAZODONE HCL [Concomitant]
     Route: 048
  13. CATAPRES [Concomitant]

REACTIONS (8)
  - CELLULITIS [None]
  - DIABETES MELLITUS [None]
  - DIABETES MELLITUS INADEQUATE CONTROL [None]
  - DIABETIC COMA [None]
  - DIABETIC NEUROPATHY [None]
  - HAEMATOMA [None]
  - LIMB DISCOMFORT [None]
  - PHLEBITIS [None]
